FAERS Safety Report 8599273-3 (Version None)
Quarter: 2012Q3

REPORT INFORMATION
  Report Type: 
  Country: None (occurrence: None)
  Receive Date: 20120816
  Receipt Date: 20120404
  Transmission Date: 20120928
  Serious: No
  Sender: FDA-Public Use
  Company Number: US-AMGEN-USASP2012021796

PATIENT
  Sex: Female

DRUGS (4)
  1. OXALIPLATIN [Concomitant]
  2. NEUPOGEN [Suspect]
     Indication: CHEMOTHERAPY
     Dosage: UNK
     Dates: start: 20120403
  3. LEUCOVORIN CALCIUM [Concomitant]
  4. FLUOROURACIL [Concomitant]

REACTIONS (3)
  - BONE PAIN [None]
  - MUSCULOSKELETAL DISCOMFORT [None]
  - DRUG INEFFECTIVE [None]
